FAERS Safety Report 10287803 (Version 1)
Quarter: 2014Q3

REPORT INFORMATION
  Report Type: Spontaneous
  Country: IT (occurrence: None)
  Receive Date: 20140707
  Receipt Date: 20140707
  Transmission Date: 20150326
  Serious: Yes (Hospitalization)
  Sender: FDA-Public Use
  Company Number: IT-AIKEM-000644

PATIENT
  Age: 76 Year
  Sex: Male

DRUGS (8)
  1. METFORMIN [Suspect]
     Active Substance: METFORMIN HYDROCHLORIDE
     Indication: TYPE 2 DIABETES MELLITUS
     Dosage: 500.00000000-MG-3.00/TIMES PER-10DAYS
  2. LEVOFLOXACIN [Suspect]
     Active Substance: LEVOFLOXACIN
     Indication: SEPSIS
  3. BISOPROLOL (BISOPROLOL) [Concomitant]
     Active Substance: BISOPROLOL
  4. SIMVASTATIN (SIMVASTTIN) [Concomitant]
  5. DELAPRIL / INDAPAMIDE(DELAPRIL / INDAPAMIDE) [Concomitant]
  6. G L I C LAZ I D E(G L I C LAZ I D E) [Concomitant]
  7. INDAPAMIDE (INDAPAMIDE) [Concomitant]
     Active Substance: INDAPAMIDE
  8. HYDROCHLOROTHIAZIDE /OLMESARTAN(HYDROCHLOROTHIAZIDE /OLMESARTAN) [Concomitant]

REACTIONS (11)
  - Sepsis [None]
  - Lethargy [None]
  - Enterococcal infection [None]
  - Bundle branch block left [None]
  - Metabolic acidosis [None]
  - Toxicity to various agents [None]
  - Hypoglycaemia [None]
  - Escherichia urinary tract infection [None]
  - Disorientation [None]
  - Hyperlactacidaemia [None]
  - Tubulointerstitial nephritis [None]
